FAERS Safety Report 13003692 (Version 5)
Quarter: 2017Q1

REPORT INFORMATION
  Report Type: Spontaneous
  Country: US (occurrence: US)
  Receive Date: 20161206
  Receipt Date: 20170317
  Transmission Date: 20170428
  Serious: Yes (Hospitalization)
  Sender: FDA-Public Use
  Company Number: US-ACTELION-A-NJ2016-146391

PATIENT
  Age: 63 Year
  Sex: Male
  Weight: 84.35 kg

DRUGS (6)
  1. LETAIRIS [Concomitant]
     Active Substance: AMBRISENTAN
     Dosage: 10 MG, UNK
  2. AMIODARONE [Concomitant]
     Active Substance: AMIODARONE
     Dosage: 200 MG, QD
  3. VELETRI [Suspect]
     Active Substance: EPOPROSTENOL
     Indication: PULMONARY ARTERIAL HYPERTENSION
     Dosage: 35 NG/KG, PER MIN
     Route: 042
     Dates: start: 20150618
  4. WARFARIN [Concomitant]
     Active Substance: WARFARIN
     Dosage: 5 MG, PER WARFARIN CLINIC
  5. PRAVASTATIN. [Concomitant]
     Active Substance: PRAVASTATIN
     Dosage: 40 MG, 5 DAYS/WEEK
  6. REVATIO [Concomitant]
     Active Substance: SILDENAFIL CITRATE
     Dosage: 20 MG, TID

REACTIONS (15)
  - Chest pain [Unknown]
  - Influenza [Unknown]
  - Dyspnoea [Unknown]
  - Drug dose omission [Recovered/Resolved]
  - Pneumonia [Unknown]
  - Acute respiratory failure [Unknown]
  - Feeling hot [Recovered/Resolved]
  - Confusional state [Unknown]
  - Pyrexia [Unknown]
  - Fatigue [Unknown]
  - Malaise [Unknown]
  - Tachypnoea [Unknown]
  - Flushing [Recovered/Resolved]
  - Syncope [Unknown]
  - Pain [Unknown]

NARRATIVE: CASE EVENT DATE: 20170222
